FAERS Safety Report 18907528 (Version 2)
Quarter: 2021Q4

REPORT INFORMATION
  Report Type: Spontaneous
  Country: BR (occurrence: BR)
  Receive Date: 20210218
  Receipt Date: 20211119
  Transmission Date: 20220303
  Serious: Yes (Hospitalization)
  Sender: FDA-Public Use
  Company Number: None

PATIENT
  Sex: Male
  Weight: 97.5 kg

DRUGS (10)
  1. METFORMIN HYDROCHLORIDE\SITAGLIPTIN PHOSPHATE [Suspect]
     Active Substance: METFORMIN HYDROCHLORIDE\SITAGLIPTIN PHOSPHATE
     Indication: Diabetes mellitus
     Dosage: 5/1000 MG, ALSO REPORTED AS TWO TIMES A DAY
     Route: 048
  2. ROSUVASTATIN CALCIUM [Suspect]
     Active Substance: ROSUVASTATIN CALCIUM
     Indication: Product used for unknown indication
     Dosage: 5 MG, QD
     Route: 048
     Dates: end: 20141215
  3. ROSUVASTATIN CALCIUM [Suspect]
     Active Substance: ROSUVASTATIN CALCIUM
     Dosage: 10 MILLIGRAM, QD
     Route: 048
     Dates: end: 20141215
  4. METOPROLOL SUCCINATE [Suspect]
     Active Substance: METOPROLOL SUCCINATE
     Indication: Cardiac disorder
     Dosage: ALSO REPORTED AS 25 MG, BID
     Route: 048
  5. DAPAGLIFLOZIN [Suspect]
     Active Substance: DAPAGLIFLOZIN
     Indication: Diabetes mellitus
     Dosage: 10 MG, QD
     Route: 048
     Dates: start: 2014
  6. ASPIRIN [Suspect]
     Active Substance: ASPIRIN
     Indication: Angioplasty
     Dosage: UNK
     Route: 048
     Dates: start: 1992, end: 1992
  7. RABEPRAZOLE SODIUM [Concomitant]
     Active Substance: RABEPRAZOLE SODIUM
     Indication: Prophylaxis
     Route: 048
  8. LOSARTAN POTASSIUM [Concomitant]
     Active Substance: LOSARTAN POTASSIUM
     Indication: Hypertension
     Route: 048
  9. REPAGLINIDE [Concomitant]
     Active Substance: REPAGLINIDE
     Indication: Diabetes mellitus
     Route: 048
  10. DILTIAZEM [Concomitant]
     Active Substance: DILTIAZEM
     Indication: Cardiac disorder
     Route: 048

REACTIONS (6)
  - Weight decreased [Recovered/Resolved]
  - Off label use [Not Recovered/Not Resolved]
  - Hypersensitivity [Recovered/Resolved]
  - Arterial occlusive disease [Recovered/Resolved]
  - Pain [Unknown]
  - Off label use [Not Recovered/Not Resolved]

NARRATIVE: CASE EVENT DATE: 19920101
